FAERS Safety Report 7212098-6 (Version None)
Quarter: 2011Q1

REPORT INFORMATION
  Report Type: 
  Country: None (occurrence: None)
  Receive Date: 20110106
  Receipt Date: 20101227
  Transmission Date: 20110831
  Serious: Yes (Other)
  Sender: FDA-Public Use
  Company Number: ES-JNJFOC-20101204952

PATIENT
  Age: 32 Year
  Sex: Female

DRUGS (3)
  1. RITONAVIR [Concomitant]
     Indication: HIV INFECTION
  2. DARUNAVIR [Suspect]
     Indication: HIV INFECTION
     Route: 048
  3. LAMIVUDINE + ZIDOVUDINE [Concomitant]
     Indication: HIV INFECTION

REACTIONS (3)
  - DRUG EXPOSURE DURING PREGNANCY [None]
  - CAESAREAN SECTION [None]
  - PREMATURE LABOUR [None]
